FAERS Safety Report 8400062-0 (Version None)
Quarter: 2012Q2

REPORT INFORMATION
  Report Type: 
  Country: None (occurrence: None)
  Receive Date: 20120525
  Receipt Date: 20120517
  Transmission Date: 20120825
  Serious: Yes (Death)
  Sender: FDA-Public Use
  Company Number: TCI2012A00186

PATIENT
  Age: 71 Year
  Sex: Male

DRUGS (5)
  1. ZOLPIDEM TARTRATE [Concomitant]
  2. PURSENNID (SENNOSIDE A+B) [Concomitant]
  3. ALDACTONE [Concomitant]
  4. RIZE (CLOTIAZEPAM) [Concomitant]
  5. ROZEREM [Suspect]
     Indication: INSOMNIA
     Dosage: 8 MG (8 MG,1 IN 1 D) PER ORAL
     Route: 048
     Dates: start: 20111125, end: 20120109

REACTIONS (2)
  - CARDIO-RESPIRATORY ARREST [None]
  - ELECTROCARDIOGRAM QT PROLONGED [None]
